FAERS Safety Report 4765461-7 (Version None)
Quarter: 2005Q3

REPORT INFORMATION
  Report Type: 
  Country: None (occurrence: None)
  Receive Date: 20050908
  Receipt Date: 20050819
  Transmission Date: 20060218
  Serious: Yes (Death)
  Sender: FDA-Public Use
  Company Number: 2005117659

PATIENT
  Age: 74 Year
  Sex: Male
  Weight: 80.1 kg

DRUGS (5)
  1. IRINOTECAN HCL [Suspect]
     Indication: LUNG NEOPLASM MALIGNANT
     Dosage: 60 MG/M2 (INTERMITTENT), INTRAVENOUS
     Route: 042
     Dates: start: 20050629, end: 20050706
  2. CISPLATIN [Suspect]
     Indication: LUNG NEOPLASM MALIGNANT
     Dosage: 60 MG/M*2 (INTERMITTENT), INTRAVENOUS
     Route: 042
     Dates: start: 20050629, end: 20050706
  3. BETAMETHASONE [Concomitant]
  4. FAMOTIDINE [Concomitant]
  5. LASIX [Concomitant]

REACTIONS (9)
  - ACUTE RESPIRATORY DISTRESS SYNDROME [None]
  - BONE MARROW TOXICITY [None]
  - DRUG INEFFECTIVE [None]
  - MULTI-ORGAN FAILURE [None]
  - NEUTROPENIA [None]
  - PNEUMONIA [None]
  - RESPIRATORY FAILURE [None]
  - SEPSIS [None]
  - SYSTEMIC INFLAMMATORY RESPONSE SYNDROME [None]
